FAERS Safety Report 10070753 (Version 1)
Quarter: 2014Q2

REPORT INFORMATION
  Report Type: Spontaneous
  Country: US (occurrence: US)
  Receive Date: 20140410
  Receipt Date: 20140410
  Transmission Date: 20141212
  Serious: No
  Sender: FDA-Public Use
  Company Number: US-PFIZER INC-2014099904

PATIENT
  Sex: Female

DRUGS (10)
  1. LIPITOR [Suspect]
     Dosage: UNK
  2. FLAGYL [Suspect]
     Dosage: UNK
  3. ERYTHROMYCIN [Suspect]
     Dosage: UNK
  4. AMBIEN [Suspect]
     Dosage: UNK
  5. IMIPRAMINE [Suspect]
     Dosage: UNK
  6. ZOCOR [Suspect]
     Dosage: UNK
  7. VALIUM [Suspect]
     Dosage: UNK
  8. PRAVASTATIN [Suspect]
     Dosage: UNK
  9. BUSPAR [Suspect]
     Dosage: UNK
  10. AMOX [Suspect]
     Dosage: UNK

REACTIONS (1)
  - Drug hypersensitivity [Unknown]
